FAERS Safety Report 6348985-0 (Version None)
Quarter: 2009Q3

REPORT INFORMATION
  Report Type: 
  Country: None (occurrence: None)
  Receive Date: 20090911
  Receipt Date: 20090902
  Transmission Date: 20100115
  Serious: Yes (Other)
  Sender: FDA-Public Use
  Company Number: US-AVENTIS-200917862US

PATIENT
  Sex: Female

DRUGS (2)
  1. APIDRA [Suspect]
     Dosage: DOSE: 2-15 PER SCALE; FREQUENCY: BEFORE MEALS AND AT BEDTIME
     Route: 058
     Dates: start: 20070101
  2. OPTICLIK (INSULIN INJECTION PEN) [Suspect]
     Dates: start: 20070101

REACTIONS (2)
  - RETINAL DETACHMENT [None]
  - RETINAL HAEMORRHAGE [None]
